FAERS Safety Report 21764044 (Version 1)
Quarter: 2022Q4

REPORT INFORMATION
  Report Type: Spontaneous
  Country: US (occurrence: US)
  Receive Date: 20221222
  Receipt Date: 20221222
  Transmission Date: 20230112
  Serious: Yes (Other)
  Sender: FDA-Public Use
  Company Number: US-PROCTER+GAMBLE-PH22012586

PATIENT
  Age: 70 Year
  Sex: Female

DRUGS (3)
  1. BISMUTH SUBSALICYLATE [Suspect]
     Active Substance: BISMUTH SUBSALICYLATE
     Indication: Irritable bowel syndrome
     Dosage: INCREASED HER DAILY INTAKE
     Route: 048
  2. BISMUTH SUBSALICYLATE [Suspect]
     Active Substance: BISMUTH SUBSALICYLATE
     Indication: Diarrhoea
  3. BISMUTH SUBSALICYLATE [Suspect]
     Active Substance: BISMUTH SUBSALICYLATE
     Indication: Abdominal pain

REACTIONS (13)
  - Toxicity to various agents [Recovered/Resolved]
  - Mental status changes [Recovered/Resolved]
  - Dyspnoea [Recovered/Resolved]
  - Nausea [Recovered/Resolved]
  - Vomiting [Recovered/Resolved]
  - Confusional state [Recovered/Resolved]
  - Metabolic acidosis [Recovered/Resolved]
  - Respiratory alkalosis [Recovered/Resolved]
  - Respiratory rate increased [Recovered/Resolved]
  - Analgesic drug level increased [Recovered/Resolved]
  - X-ray gastrointestinal tract abnormal [Recovered/Resolved]
  - Drug ineffective [Unknown]
  - Incorrect product administration duration [Unknown]
